FAERS Safety Report 17505462 (Version 1)
Quarter: 2020Q1

REPORT INFORMATION
  Report Type: Report from Study
  Country: CA (occurrence: CA)
  Receive Date: 20200305
  Receipt Date: 20200305
  Transmission Date: 20200409
  Serious: Yes (Hospitalization)
  Sender: FDA-Public Use
  Company Number: CA-EISAI MEDICAL RESEARCH-EC-2016-023218

PATIENT
  Age: 63 Year
  Sex: Female

DRUGS (15)
  1. LENVIMA [Suspect]
     Active Substance: LENVATINIB
     Dosage: 14 MG ONCE A DAY, SUSPENDS 1 OR 2 DAYS AFTER EVERY 3 WEEKS
     Route: 048
     Dates: start: 2020
  2. LENVIMA [Suspect]
     Active Substance: LENVATINIB
     Route: 048
     Dates: start: 20190506
  3. BABY ASPIRIN [Concomitant]
     Active Substance: ASPIRIN
  4. ADALAT [Concomitant]
     Active Substance: NIFEDIPINE
  5. LENVIMA [Suspect]
     Active Substance: LENVATINIB
     Route: 048
     Dates: start: 20170710
  6. HYDROCHOLORTHIAZIDE [Concomitant]
  7. LENVIMA [Suspect]
     Active Substance: LENVATINIB
     Route: 048
     Dates: start: 20170216, end: 20170315
  8. SYNTHROID [Concomitant]
     Active Substance: LEVOTHYROXINE SODIUM
  9. WARFARIN [Concomitant]
     Active Substance: WARFARIN
  10. LENVIMA [Suspect]
     Active Substance: LENVATINIB
     Route: 048
     Dates: start: 20170331, end: 201705
  11. ELIQUIS [Concomitant]
     Active Substance: APIXABAN
  12. LENVIMA [Suspect]
     Active Substance: LENVATINIB
     Indication: THYROID CANCER
     Route: 048
     Dates: start: 20161123, end: 201612
  13. LENVIMA [Suspect]
     Active Substance: LENVATINIB
     Route: 048
     Dates: start: 201612, end: 20170209
  14. LENVIMA [Suspect]
     Active Substance: LENVATINIB
     Route: 048
     Dates: end: 20190428
  15. VITAMIN D [Concomitant]
     Active Substance: VITAMIN D NOS

REACTIONS (25)
  - Arrhythmia [Recovered/Resolved]
  - Pyrexia [Recovering/Resolving]
  - Vomiting [Unknown]
  - Dyspepsia [Not Recovered/Not Resolved]
  - Tremor [Unknown]
  - Pain in extremity [Recovered/Resolved]
  - Hyperkeratosis [Unknown]
  - Weight decreased [Not Recovered/Not Resolved]
  - Food intolerance [Unknown]
  - Malaise [Recovered/Resolved]
  - Nausea [Unknown]
  - Decreased appetite [Recovered/Resolved]
  - Burning sensation [Unknown]
  - Pneumonia [Recovering/Resolving]
  - Hypertension [Recovering/Resolving]
  - Jaw disorder [Not Recovered/Not Resolved]
  - Gingivitis [Unknown]
  - Hypotension [Unknown]
  - Lacrimation increased [Unknown]
  - Urinary tract infection [Recovered/Resolved]
  - Influenza like illness [Unknown]
  - Fatigue [Recovering/Resolving]
  - Abdominal discomfort [Unknown]
  - Diarrhoea [Unknown]
  - Cystitis [Unknown]

NARRATIVE: CASE EVENT DATE: 2016
